FAERS Safety Report 25041425 (Version 2)
Quarter: 2025Q2

REPORT INFORMATION
  Report Type: Spontaneous
  Country: US (occurrence: US)
  Receive Date: 20250305
  Receipt Date: 20250417
  Transmission Date: 20250717
  Serious: Yes (Hospitalization, Other)
  Sender: REGENERON
  Company Number: US-REGENERON PHARMACEUTICALS, INC.-2025-040716

PATIENT
  Sex: Female

DRUGS (1)
  1. PRALUENT [Suspect]
     Active Substance: ALIROCUMAB
     Indication: Cerebrovascular accident
     Dosage: 75 MG, Q2W
     Route: 058
     Dates: start: 20250209

REACTIONS (3)
  - Stent placement [Unknown]
  - Carotid artery perforation [Unknown]
  - Diplopia [Unknown]

NARRATIVE: CASE EVENT DATE: 20250101
